FAERS Safety Report 7733964-9 (Version None)
Quarter: 2011Q3

REPORT INFORMATION
  Report Type: 
  Country: None (occurrence: None)
  Receive Date: 20110907
  Receipt Date: 20110829
  Transmission Date: 20111222
  Serious: Yes (Other)
  Sender: FDA-Public Use
  Company Number: FI-JNJFOC-20110811634

PATIENT
  Age: 63 Year
  Sex: Male

DRUGS (8)
  1. REMICADE [Suspect]
     Indication: CROHN'S DISEASE
     Route: 042
     Dates: start: 20110801, end: 20110801
  2. PENTASA [Concomitant]
  3. AZAMUN [Concomitant]
  4. ORLOC [Concomitant]
  5. KALISOL [Concomitant]
  6. REMICADE [Suspect]
     Dosage: 63 INFUSIONS
     Route: 042
     Dates: start: 20050101
  7. HYDAC [Concomitant]
  8. EMGESAN [Concomitant]

REACTIONS (1)
  - METASTATIC BRONCHIAL CARCINOMA [None]
